FAERS Safety Report 15845162 (Version 4)
Quarter: 2019Q3

REPORT INFORMATION
  Report Type: Report from Study
  Country: GB (occurrence: GB)
  Receive Date: 20190119
  Receipt Date: 20190822
  Transmission Date: 20191004
  Serious: Yes (Life-Threatening, Hospitalization, Other)
  Sender: FDA-Public Use
  Company Number: GB-AUROBINDO-AUR-APL-2019-002284

PATIENT

DRUGS (1)
  1. PARACETAMOL [Suspect]
     Active Substance: ACETAMINOPHEN
     Indication: PRODUCT USED FOR UNKNOWN INDICATION
     Dosage: 16-62 GRAMS
     Route: 048

REACTIONS (15)
  - Renal failure [Recovered/Resolved]
  - Pulmonary sepsis [Recovered/Resolved]
  - Coagulopathy [Recovered/Resolved]
  - Liver transplant rejection [Recovered/Resolved]
  - Transplant dysfunction [Recovered/Resolved]
  - Encephalopathy [Unknown]
  - Hepatic vein thrombosis [Recovered/Resolved]
  - Pulmonary embolism [Recovered/Resolved]
  - Post procedural discharge [Recovered/Resolved]
  - Venoocclusive liver disease [Recovered/Resolved]
  - Sinus disorder [Recovered/Resolved]
  - Pleural effusion [Recovered/Resolved]
  - Acute hepatic failure [Recovered/Resolved]
  - Impaired healing [Recovered/Resolved]
  - Overdose [Recovered/Resolved]
